FAERS Safety Report 8036973-8 (Version None)
Quarter: 2012Q1

REPORT INFORMATION
  Report Type: 
  Country: None (occurrence: None)
  Receive Date: 20120111
  Receipt Date: 20120109
  Transmission Date: 20120608
  Serious: No
  Sender: FDA-Public Use
  Company Number: US-PFIZER INC-2011292826

PATIENT
  Sex: Female
  Weight: 60 kg

DRUGS (3)
  1. ATIVAN [Concomitant]
     Indication: ANXIETY
     Dosage: UNK
  2. ESTRING [Suspect]
     Indication: ATROPHY
     Dosage: UNK
     Route: 067
     Dates: start: 20111118, end: 20111202
  3. BONIVA [Concomitant]
     Indication: OSTEOPOROSIS
     Dosage: 150 MG, UNK
     Dates: start: 20111102

REACTIONS (1)
  - VULVOVAGINAL PAIN [None]
